FAERS Safety Report 5919344-7 (Version None)
Quarter: 2008Q4

REPORT INFORMATION
  Report Type: 
  Country: None (occurrence: None)
  Receive Date: 20081015
  Receipt Date: 20081008
  Transmission Date: 20090506
  Serious: Yes (Death)
  Sender: FDA-Public Use
  Company Number: A0750949A

PATIENT
  Age: 48 Year
  Sex: Female

DRUGS (3)
  1. ZOFRAN [Suspect]
     Dosage: 32MG WEEKLY
     Route: 042
     Dates: start: 20080718, end: 20080930
  2. AVASTIN (SIMVASTATIN) [Concomitant]
  3. GEMZAR [Concomitant]

REACTIONS (1)
  - DISEASE PROGRESSION [None]
